FAERS Safety Report 9160776 (Version 2)
Quarter: 2013Q2

REPORT INFORMATION
  Report Type: Report from Study
  Country: AT (occurrence: AT)
  Receive Date: 20130313
  Receipt Date: 20130603
  Transmission Date: 20140414
  Serious: Yes (Death, Hospitalization)
  Sender: FDA-Public Use
  Company Number: AT-BAYER-2012-121709

PATIENT
  Age: 64 Year
  Sex: Male
  Weight: 80 kg

DRUGS (14)
  1. REGORAFENIB [Suspect]
     Indication: COLORECTAL CANCER METASTATIC
     Dosage: 160 MG, QD
     Route: 048
     Dates: start: 20121024, end: 20121114
  2. REGORAFENIB [Suspect]
     Indication: COLORECTAL CANCER METASTATIC
     Dosage: 160 MG, QD
     Route: 048
     Dates: start: 20121024, end: 20121114
  3. REGORAFENIB [Suspect]
     Indication: COLORECTAL CANCER METASTATIC
     Dosage: 160 MG, QD
     Route: 048
     Dates: start: 20121024, end: 20121114
  4. AMLODIPIN [Concomitant]
     Indication: HYPERTENSION
     Dosage: 5 MG, BID
     Dates: start: 201211
  5. ENALAPRIL MALEATE W/HYDROCHLOROTIAZIDE [Concomitant]
     Dosage: UNK
  6. THYREX [Concomitant]
     Dosage: 100 MG, QD
  7. MAXI-KALZ [CALCIUM CARBONATE] [Concomitant]
     Dosage: UNK
  8. PANTOLOC [Concomitant]
     Dosage: 40 MG, QD
  9. SIMVASTATIN [Concomitant]
     Dosage: 40 MG, QD
  10. LOVENOX [Concomitant]
     Indication: PERIPHERAL ARTERIAL OCCLUSIVE DISEASE
     Dosage: 60 MG, TOTAL DAILY DOSE
     Route: 058
     Dates: start: 20121005, end: 20121012
  11. RINGER [Concomitant]
     Indication: NAUSEA
     Dosage: DAILY DOSE 100 ML
     Route: 042
     Dates: start: 20121118, end: 20121119
  12. RINGER [Concomitant]
     Indication: VOMITING
  13. KCL [Concomitant]
  14. FORTECORTIN [DEXAMETHASONE] [Concomitant]
     Indication: METASTASES TO CENTRAL NERVOUS SYSTEM
     Dosage: 4 MG, TOTAL DAILY DOSE
     Route: 048
     Dates: start: 20121118, end: 20121220

REACTIONS (1)
  - Metastases to central nervous system [Unknown]
